FAERS Safety Report 4467285-7 (Version None)
Quarter: 2004Q4

REPORT INFORMATION
  Report Type: 
  Country: None (occurrence: None)
  Receive Date: 20041006
  Receipt Date: 20040930
  Transmission Date: 20050328
  Serious: Yes (Life-Threatening)
  Sender: FDA-Public Use
  Company Number: FRPFM-E-20040106

PATIENT
  Age: 65 Year
  Sex: Male

DRUGS (3)
  1. NAVELBINE [Suspect]
     Route: 042
     Dates: start: 20040421
  2. ARANESP [Suspect]
  3. TAXOL [Concomitant]

REACTIONS (4)
  - NEUROPATHY PERIPHERAL [None]
  - PAIN [None]
  - PARAESTHESIA [None]
  - POLYNEUROPATHY [None]
